FAERS Safety Report 7552272-2 (Version None)
Quarter: 2011Q2

REPORT INFORMATION
  Report Type: 
  Country: None (occurrence: None)
  Receive Date: 20110616
  Receipt Date: 20040811
  Transmission Date: 20111010
  Serious: Yes (Hospitalization)
  Sender: FDA-Public Use
  Company Number: PHHO2004JP11503

PATIENT
  Sex: Male

DRUGS (4)
  1. ATELEC [Suspect]
     Indication: HYPERTENSION
     Dosage: 10 MG / DAY
     Route: 048
     Dates: start: 20030415, end: 20030512
  2. DIOVAN [Suspect]
     Indication: HYPERTENSION
     Dosage: 80 MG / DAY
     Route: 048
     Dates: start: 20021204, end: 20030512
  3. CONIEL [Concomitant]
  4. PRAVASTATIN SODIUM [Suspect]
     Indication: HYPERCHOLESTEROLAEMIA
     Dosage: 10 MG / DAY
     Route: 048
     Dates: start: 20030428, end: 20030512

REACTIONS (2)
  - ACUTE MYOCARDIAL INFARCTION [None]
  - CHEST PAIN [None]
